FAERS Safety Report 7203559-4 (Version None)
Quarter: 2010Q4

REPORT INFORMATION
  Report Type: 
  Country: None (occurrence: None)
  Receive Date: 20101230
  Receipt Date: 20101223
  Transmission Date: 20110411
  Serious: Yes (Life-Threatening)
  Sender: FDA-Public Use
  Company Number: FR-KINGPHARMUSA00001-K201001544

PATIENT
  Age: 78 Year
  Sex: Male

DRUGS (11)
  1. ALTACE [Suspect]
     Indication: CARDIAC FAILURE
     Dosage: 5 MG, QD
     Route: 048
     Dates: start: 20090101, end: 20101011
  2. ALDACTONE [Suspect]
     Indication: HYPERTENSION
     Dosage: 25 MG, QD
     Route: 048
     Dates: start: 20090101, end: 20101011
  3. CONCOR COR [Concomitant]
     Dosage: 5 MG, UNK
  4. EDEMID [Concomitant]
     Dosage: 40 MG, UNK
  5. EZETIMIBE/SIMVASTATIN [Concomitant]
     Dosage: 10/20
  6. WARFARIN [Concomitant]
     Dosage: 3 MG, UNK
  7. INSULIN [Concomitant]
     Dosage: UNK
  8. INSULATARD [Concomitant]
     Dosage: UNK
  9. LEXAURIN [Concomitant]
     Dosage: UNK
  10. ZOLPIDEM [Concomitant]
     Dosage: UNK
  11. PENTILIN [Concomitant]
     Dosage: UNK

REACTIONS (3)
  - BRADYCARDIA [None]
  - CARDIOGENIC SHOCK [None]
  - HYPERKALAEMIA [None]
